FAERS Safety Report 16096185 (Version 1)
Quarter: 2019Q1

REPORT INFORMATION
  Report Type: Spontaneous
  Country: CA (occurrence: CA)
  Receive Date: 20190320
  Receipt Date: 20190320
  Transmission Date: 20190418
  Serious: Yes (Death)
  Sender: FDA-Public Use
  Company Number: CA-BAXTER-2019BAX005310

PATIENT
  Age: 3 Month
  Sex: Female

DRUGS (3)
  1. HIGHLY CONCENTRATED POTASSIUM CHLORIDE 400MEQ/L [Suspect]
     Active Substance: POTASSIUM CHLORIDE
     Indication: PRODUCT USED FOR UNKNOWN INDICATION
     Dosage: DOSAGE FORM: LIQUID INTRAVENOUS
     Route: 065
  2. DEXTROSE AND SODIUM CHLORIDE INJECTION [Concomitant]
     Indication: PRODUCT USED FOR UNKNOWN INDICATION
     Dosage: DEXTROSE 5% AND 0.2% SODIUM CHLORIDE INJECTION. DOSAGE FORM: LIQUID INTRAVENOUS
     Route: 065
  3. INSULIN [Concomitant]
     Active Substance: INSULIN NOS
     Indication: PRODUCT USED FOR UNKNOWN INDICATION
     Dosage: DOSAGE FORM: NOT SPECIFIED
     Route: 065

REACTIONS (8)
  - Hyperkalaemia [Fatal]
  - Brain hypoxia [Fatal]
  - Cardio-respiratory arrest [Fatal]
  - Infection [Fatal]
  - Product administration error [Fatal]
  - Pyrexia [Fatal]
  - Seizure [Fatal]
  - Arrhythmia [Fatal]
